FAERS Safety Report 6962511-4 (Version None)
Quarter: 2010Q3

REPORT INFORMATION
  Report Type: 
  Country: None (occurrence: None)
  Receive Date: 20100831
  Receipt Date: 20100824
  Transmission Date: 20110219
  Serious: Yes (Hospitalization)
  Sender: FDA-Public Use
  Company Number: TPA2010A04646

PATIENT
  Age: 77 Year
  Sex: Female
  Weight: 61.2356 kg

DRUGS (2)
  1. DEXILANT [Suspect]
     Indication: MYALGIA
     Dosage: 60 MG, 1 IN 1 D, PER ORAL
     Route: 048
     Dates: start: 20100818, end: 20100819
  2. COUMADIN [Concomitant]

REACTIONS (11)
  - DIZZINESS [None]
  - EYE ROLLING [None]
  - FATIGUE [None]
  - HYPOTONIA [None]
  - LOSS OF CONSCIOUSNESS [None]
  - MALAISE [None]
  - MUSCLE RIGIDITY [None]
  - PALLOR [None]
  - PARAESTHESIA [None]
  - UNEVALUABLE EVENT [None]
  - VOMITING [None]
